FAERS Safety Report 6248145-8 (Version None)
Quarter: 2009Q2

REPORT INFORMATION
  Report Type: 
  Country: None (occurrence: None)
  Receive Date: 20090624
  Receipt Date: 20090624
  Transmission Date: 20091009
  Serious: Yes (Other)
  Sender: FDA-Public Use
  Company Number: None

PATIENT
  Age: 61 Year
  Sex: Female
  Weight: 90.7194 kg

DRUGS (1)
  1. CIPRO [Suspect]
     Indication: LOCALISED INFECTION
     Dosage: 500 MG 2X A DAY ORAL
     Route: 048
     Dates: start: 20090426, end: 20090502

REACTIONS (5)
  - DYSKINESIA [None]
  - HYPERPALLAESTHESIA [None]
  - MUSCLE SPASMS [None]
  - MUSCLE TWITCHING [None]
  - NEUROPATHY PERIPHERAL [None]
